FAERS Safety Report 16994073 (Version 6)
Quarter: 2020Q2

REPORT INFORMATION
  Report Type: Spontaneous
  Country: GR (occurrence: GR)
  Receive Date: 20191105
  Receipt Date: 20200605
  Transmission Date: 20200713
  Serious: Yes (Life-Threatening, Hospitalization, Other)
  Sender: FDA-Public Use
  Company Number: NVSC2019GR021907

PATIENT
  Age: 92 Year
  Sex: Female

DRUGS (5)
  1. QUETIAPINE. [Suspect]
     Active Substance: QUETIAPINE
     Indication: NERVOUS SYSTEM DISORDER
     Dosage: 400 MILLIGRAM DAILY
     Route: 048
  2. FLECAINIDE [Interacting]
     Active Substance: FLECAINIDE
     Indication: CARDIAC DISORDER
     Dosage: 200 MILLIGRAM DAILY; 200MG/ DAILY, EVERY 12 HOURS IN TWO DOSES, OF 100MG EACH ONE
     Route: 048
  3. MEMANTINE. [Interacting]
     Active Substance: MEMANTINE
     Indication: DEMENTIA ALZHEIMER^S TYPE
     Dosage: 10 MILLIGRAM DAILY
     Route: 048
  4. MEMANTINE. [Interacting]
     Active Substance: MEMANTINE
     Indication: NERVOUS SYSTEM DISORDER
  5. FLECAINIDE [Interacting]
     Active Substance: FLECAINIDE
     Indication: ATRIAL FIBRILLATION
     Dosage: 200 MG, Q12H (2 DOSES OF 100 MG)
     Route: 042

REACTIONS (19)
  - Vomiting [Recovered/Resolved]
  - Drug interaction [Unknown]
  - Electrocardiogram QT prolonged [Recovered/Resolved]
  - Toxicity to various agents [Recovered/Resolved]
  - Acute kidney injury [Recovering/Resolving]
  - Depressed level of consciousness [Recovered/Resolved]
  - Drug-disease interaction [Unknown]
  - Device malfunction [Recovered/Resolved]
  - Oliguria [Recovered/Resolved]
  - Drug-device interaction [Unknown]
  - Diarrhoea [Recovered/Resolved]
  - Complication associated with device [Recovered/Resolved]
  - Metabolic acidosis [Recovered/Resolved]
  - Blood urea increased [Recovering/Resolving]
  - Blood creatinine increased [Recovering/Resolving]
  - Blood pressure decreased [Recovered/Resolved]
  - Electrocardiogram QRS complex prolonged [Recovered/Resolved]
  - Off label use [Unknown]
  - Device pacing issue [Recovered/Resolved]
